FAERS Safety Report 16094737 (Version 1)
Quarter: 2019Q1

REPORT INFORMATION
  Report Type: Spontaneous
  Country: US (occurrence: US)
  Receive Date: 20190218
  Receipt Date: 20190218
  Transmission Date: 20190418
  Serious: No
  Sender: FDA-Public Use
  Company Number: None

PATIENT
  Age: 60 Year
  Sex: Female

DRUGS (19)
  1. FOLBEE PLUS [Concomitant]
  2. GABAPENTIN TAB [Concomitant]
  3. COUMADIN [Concomitant]
     Active Substance: WARFARIN SODIUM
  4. GABAPENTIN. [Concomitant]
     Active Substance: GABAPENTIN
  5. NAMENDA [Concomitant]
     Active Substance: MEMANTINE HYDROCHLORIDE
  6. VITAMIN A [Concomitant]
     Active Substance: VITAMIN A
  7. COQ10 [Concomitant]
     Active Substance: UBIDECARENONE
  8. L-ARGININE [Concomitant]
     Active Substance: ARGININE
  9. PRESERVISION CAP [Concomitant]
  10. PANTOPRAZOLE [Concomitant]
     Active Substance: PANTOPRAZOLE
  11. URSODIOL. [Concomitant]
     Active Substance: URSODIOL
  12. OCALIVA [Suspect]
     Active Substance: OBETICHOLIC ACID
     Indication: PRIMARY BILIARY CHOLANGITIS
     Route: 048
     Dates: start: 20170228
  13. PRAVASTATIN. [Concomitant]
     Active Substance: PRAVASTATIN
  14. PRAVASTATIN. [Concomitant]
     Active Substance: PRAVASTATIN
  15. GLUCOSAMINE [Concomitant]
     Active Substance: GLUCOSAMINE
  16. PLAVIX [Suspect]
     Active Substance: CLOPIDOGREL BISULFATE
  17. CALCIUM [Concomitant]
     Active Substance: CALCIUM
  18. VITAMIN D3 [Concomitant]
     Active Substance: CHOLECALCIFEROL
  19. ZETIA [Concomitant]
     Active Substance: EZETIMIBE

REACTIONS (1)
  - Pruritus [None]

NARRATIVE: CASE EVENT DATE: 20190125
